FAERS Safety Report 14645123 (Version 1)
Quarter: 2018Q1

REPORT INFORMATION
  Report Type: Spontaneous
  Country: FR (occurrence: FR)
  Receive Date: 20180315
  Receipt Date: 20180315
  Transmission Date: 20180509
  Serious: Yes (Other)
  Sender: FDA-Public Use
  Company Number: FR-MERCK KGAA-2043872

PATIENT
  Sex: Female

DRUGS (2)
  1. NOVOTHYROX [Suspect]
     Active Substance: LEVOTHYROXINE SODIUM
     Indication: PRODUCT USED FOR UNKNOWN INDICATION
     Dates: end: 20170820
  2. LEVOTHYROX NF [Suspect]
     Active Substance: LEVOTHYROXINE SODIUM
     Dates: start: 20171009

REACTIONS (24)
  - Disturbance in attention [None]
  - Dysgraphia [None]
  - Colitis [None]
  - Social avoidant behaviour [None]
  - Malaise [None]
  - Insomnia [None]
  - Muscle spasms [None]
  - Hot flush [None]
  - Decreased interest [None]
  - Diplopia [None]
  - Diarrhoea [None]
  - Nausea [None]
  - Anxiety [None]
  - Alopecia [None]
  - Asthenia [None]
  - Memory impairment [None]
  - Vision blurred [None]
  - Dementia Alzheimer^s type [None]
  - Gait inability [None]
  - Dizziness [None]
  - Myalgia [None]
  - Abdominal distension [None]
  - Headache [None]
  - Palpitations [None]
